FAERS Safety Report 15573727 (Version 1)
Quarter: 2018Q4

REPORT INFORMATION
  Report Type: Spontaneous
  Country: US (occurrence: US)
  Receive Date: 20181101
  Receipt Date: 20181101
  Transmission Date: 20190205
  Serious: Yes (Other)
  Sender: FDA-Public Use
  Company Number: US-CIPLA LTD.-2018US22218

PATIENT

DRUGS (2)
  1. WARFARIN [Suspect]
     Active Substance: WARFARIN
     Indication: ANTICOAGULANT THERAPY
     Dosage: 10 MG, PER DAY
     Route: 048
  2. WARFARIN [Suspect]
     Active Substance: WARFARIN
     Dosage: 7.5 MG, PER DAY
     Route: 048

REACTIONS (9)
  - Fatigue [Unknown]
  - International normalised ratio increased [Unknown]
  - Palpitations [Unknown]
  - Faeces discoloured [Unknown]
  - Drug resistance [Unknown]
  - Asthenia [Unknown]
  - Chest pain [Unknown]
  - Anxiety [Unknown]
  - Discomfort [Unknown]
